FAERS Safety Report 23106895 (Version 2)
Quarter: 2023Q4

REPORT INFORMATION
  Report Type: Spontaneous
  Country: BE (occurrence: BE)
  Receive Date: 20231026
  Receipt Date: 20231103
  Transmission Date: 20240109
  Serious: Yes (Congenital Anomaly)
  Sender: FDA-Public Use
  Company Number: BE-Merck Healthcare KGaA-2023482576

PATIENT
  Sex: Female
  Weight: 3 kg

DRUGS (2)
  1. REBIF [Suspect]
     Active Substance: INTERFERON BETA-1A
     Indication: Multiple sclerosis
     Route: 064
  2. REBIF [Suspect]
     Active Substance: INTERFERON BETA-1A

REACTIONS (2)
  - Congenital hypothyroidism [Unknown]
  - Foetal exposure during pregnancy [Recovered/Resolved]
